FAERS Safety Report 19003180 (Version 2)
Quarter: 2021Q2

REPORT INFORMATION
  Report Type: Spontaneous
  Country: CA (occurrence: CA)
  Receive Date: 20210312
  Receipt Date: 20210413
  Transmission Date: 20210717
  Serious: Yes (Hospitalization, Other)
  Sender: FDA-Public Use
  Company Number: CA-JNJFOC-20210309493

PATIENT
  Age: 40 Year
  Sex: Male

DRUGS (88)
  1. ARIPIPRAZOLE. [Suspect]
     Active Substance: ARIPIPRAZOLE
     Route: 065
  2. GABAPENTIN. [Suspect]
     Active Substance: GABAPENTIN
     Route: 065
  3. GABAPENTIN. [Suspect]
     Active Substance: GABAPENTIN
     Route: 065
  4. LITHIUM CARBONATE. [Suspect]
     Active Substance: LITHIUM CARBONATE
     Indication: SCHIZOPHRENIA
     Route: 065
  5. TRIFLUOPERAZINE [Suspect]
     Active Substance: TRIFLUOPERAZINE HYDROCHLORIDE
     Indication: SCHIZOPHRENIA
     Route: 065
  6. LITHIUM. [Suspect]
     Active Substance: LITHIUM
     Indication: AFFECTIVE DISORDER
     Route: 065
  7. LOXAPINE SUCCINATE. [Suspect]
     Active Substance: LOXAPINE SUCCINATE
     Route: 065
  8. LOXAPINE. [Concomitant]
     Active Substance: LOXAPINE
  9. VALPROATE SODIUM. [Concomitant]
     Active Substance: VALPROATE SODIUM
  10. RISPERDAL [Suspect]
     Active Substance: RISPERIDONE
     Route: 065
  11. CLOZAPINE. [Suspect]
     Active Substance: CLOZAPINE
     Indication: SCHIZOPHRENIA
     Route: 065
  12. FLUPENTIXOL [Suspect]
     Active Substance: FLUPENTIXOL
     Indication: PSYCHOTIC DISORDER
     Route: 065
  13. GABAPENTIN. [Suspect]
     Active Substance: GABAPENTIN
     Indication: SCHIZOPHRENIA
     Route: 065
  14. LOXAPINE. [Suspect]
     Active Substance: LOXAPINE
     Route: 065
  15. PERPHENAZINE. [Suspect]
     Active Substance: PERPHENAZINE
     Indication: SCHIZOPHRENIA
     Route: 065
  16. PERPHENAZINE. [Suspect]
     Active Substance: PERPHENAZINE
     Route: 065
  17. SAPHRIS [Suspect]
     Active Substance: ASENAPINE MALEATE
     Indication: PSYCHOTIC DISORDER
     Route: 065
  18. ZIPRASIDONE HYDROCHLORIDE. [Suspect]
     Active Substance: ZIPRASIDONE HYDROCHLORIDE
     Route: 065
  19. TRIFLUOPERAZINE HYDROCHLORIDE. [Suspect]
     Active Substance: TRIFLUOPERAZINE HYDROCHLORIDE
     Route: 065
  20. ASENAPINE MALEATE [Suspect]
     Active Substance: ASENAPINE MALEATE
     Indication: SCHIZOPHRENIA
     Route: 065
  21. CITALOPRAM [Concomitant]
     Active Substance: CITALOPRAM HYDROBROMIDE
  22. RISPERDAL [Suspect]
     Active Substance: RISPERIDONE
     Route: 065
  23. HALOPERIDOL. [Suspect]
     Active Substance: HALOPERIDOL
     Route: 065
  24. HALOPERIDOL. [Suspect]
     Active Substance: HALOPERIDOL
     Route: 065
  25. LOXAPINE. [Suspect]
     Active Substance: LOXAPINE
     Indication: SCHIZOPHRENIA
     Route: 065
  26. OLANZAPINE. [Suspect]
     Active Substance: OLANZAPINE
     Indication: SCHIZOPHRENIA
     Route: 065
  27. SAPHRIS [Suspect]
     Active Substance: ASENAPINE MALEATE
     Indication: SCHIZOPHRENIA
     Route: 065
  28. THIORIDAZINE [Suspect]
     Active Substance: THIORIDAZINE
     Indication: SCHIZOPHRENIA
     Route: 048
  29. THIORIDAZINE [Suspect]
     Active Substance: THIORIDAZINE
     Indication: PSYCHOTIC DISORDER
     Route: 065
  30. TRIFLUOPERAZINE [Suspect]
     Active Substance: TRIFLUOPERAZINE HYDROCHLORIDE
     Route: 065
  31. LOXAPINE SUCCINATE. [Suspect]
     Active Substance: LOXAPINE SUCCINATE
     Indication: PSYCHOTIC DISORDER
     Route: 065
  32. QUETIAPINE FUMARATE. [Suspect]
     Active Substance: QUETIAPINE FUMARATE
     Route: 048
  33. ZIPRASIDONE MESILATE [Concomitant]
     Active Substance: ZIPRASIDONE MESYLATE
  34. RISPERDAL [Suspect]
     Active Substance: RISPERIDONE
     Indication: PSYCHOTIC DISORDER
     Route: 065
  35. RISPERDAL [Suspect]
     Active Substance: RISPERIDONE
     Route: 065
  36. AMISULPRIDE [Suspect]
     Active Substance: AMISULPRIDE
     Indication: PSYCHOTHERAPY
     Route: 065
  37. ARIPIPRAZOLE. [Suspect]
     Active Substance: ARIPIPRAZOLE
     Indication: SCHIZOPHRENIA
     Route: 065
  38. CITALOPRAM [Suspect]
     Active Substance: CITALOPRAM HYDROBROMIDE
     Indication: SCHIZOPHRENIA
     Route: 065
  39. FLUPENTIXOL [Suspect]
     Active Substance: FLUPENTIXOL
     Route: 065
  40. GABAPENTIN. [Suspect]
     Active Substance: GABAPENTIN
     Route: 065
  41. HALOPERIDOL. [Suspect]
     Active Substance: HALOPERIDOL
     Route: 065
  42. LITHIUM CARBONATE. [Suspect]
     Active Substance: LITHIUM CARBONATE
     Route: 065
  43. LOXAPINE. [Suspect]
     Active Substance: LOXAPINE
     Route: 065
  44. OLANZAPINE. [Suspect]
     Active Substance: OLANZAPINE
     Route: 065
  45. OLANZAPINE. [Suspect]
     Active Substance: OLANZAPINE
     Route: 065
  46. OLANZAPINE. [Suspect]
     Active Substance: OLANZAPINE
     Route: 065
  47. ZIPRASIDONE HYDROCHLORIDE. [Suspect]
     Active Substance: ZIPRASIDONE HYDROCHLORIDE
     Indication: SCHIZOPHRENIA
     Route: 065
  48. QUETIAPINE FUMARATE. [Suspect]
     Active Substance: QUETIAPINE FUMARATE
     Indication: PSYCHOTIC DISORDER
     Route: 048
  49. TRIFLUOPERAZINE HYDROCHLORIDE. [Suspect]
     Active Substance: TRIFLUOPERAZINE HYDROCHLORIDE
     Indication: SCHIZOPHRENIA
     Route: 065
  50. SODIUM VALPROATE [Concomitant]
     Active Substance: VALPROATE SODIUM
     Route: 065
  51. RISPERDAL [Suspect]
     Active Substance: RISPERIDONE
     Route: 065
  52. FLUPENTIXOL [Suspect]
     Active Substance: FLUPENTIXOL
     Indication: SCHIZOPHRENIA
     Route: 065
  53. FLUPENTIXOL [Suspect]
     Active Substance: FLUPENTIXOL
     Route: 065
  54. HALOPERIDOL. [Suspect]
     Active Substance: HALOPERIDOL
     Indication: SCHIZOPHRENIA
     Route: 065
  55. LITHIUM CARBONATE. [Suspect]
     Active Substance: LITHIUM CARBONATE
     Indication: AFFECTIVE DISORDER
     Route: 065
  56. LITHIUM CARBONATE. [Suspect]
     Active Substance: LITHIUM CARBONATE
     Route: 065
  57. OLANZAPINE. [Suspect]
     Active Substance: OLANZAPINE
     Indication: PSYCHOTIC DISORDER
     Route: 065
  58. QUETIAPINE. [Suspect]
     Active Substance: QUETIAPINE
     Indication: SCHIZOPHRENIA
     Route: 048
  59. SAPHRIS [Suspect]
     Active Substance: ASENAPINE MALEATE
     Route: 065
  60. SAPHRIS [Suspect]
     Active Substance: ASENAPINE MALEATE
     Route: 065
  61. CITALOPRAM HYDROBROMIDE. [Suspect]
     Active Substance: CITALOPRAM HYDROBROMIDE
     Indication: DEPRESSION
     Route: 065
  62. FLUOXETINE HYDROCHLORIDE. [Suspect]
     Active Substance: FLUOXETINE HYDROCHLORIDE
     Indication: DEPRESSION
     Route: 065
  63. QUETIAPINE FUMARATE. [Suspect]
     Active Substance: QUETIAPINE FUMARATE
     Route: 048
  64. TRIFLUOPERAZINE HYDROCHLORIDE. [Suspect]
     Active Substance: TRIFLUOPERAZINE HYDROCHLORIDE
     Indication: PSYCHOTIC DISORDER
     Route: 065
  65. ABILIFY [Concomitant]
     Active Substance: ARIPIPRAZOLE
  66. OLANZAPINE. [Suspect]
     Active Substance: OLANZAPINE
     Route: 065
  67. CITALOPRAM HYDROBROMIDE. [Suspect]
     Active Substance: CITALOPRAM HYDROBROMIDE
     Route: 065
  68. FLUOXETINE HYDROCHLORIDE. [Suspect]
     Active Substance: FLUOXETINE HYDROCHLORIDE
     Indication: SCHIZOPHRENIA
     Route: 065
  69. LOXAPINE SUCCINATE. [Suspect]
     Active Substance: LOXAPINE SUCCINATE
     Indication: SCHIZOPHRENIA
     Route: 065
  70. QUETIAPINE FUMARATE. [Suspect]
     Active Substance: QUETIAPINE FUMARATE
     Route: 048
  71. ZIPRASIDONE. [Suspect]
     Active Substance: ZIPRASIDONE
     Indication: SCHIZOPHRENIA
     Route: 065
  72. ARIPIPRAZOLE. [Suspect]
     Active Substance: ARIPIPRAZOLE
     Indication: PSYCHOTHERAPY
     Route: 065
  73. CLOZAPINE. [Suspect]
     Active Substance: CLOZAPINE
     Indication: PSYCHOTIC DISORDER
     Route: 065
  74. FLUOXETINE [Suspect]
     Active Substance: FLUOXETINE HYDROCHLORIDE
     Indication: SCHIZOPHRENIA
     Route: 065
  75. GABAPENTIN. [Suspect]
     Active Substance: GABAPENTIN
     Indication: AFFECTIVE DISORDER
     Route: 065
  76. GABAPENTIN. [Suspect]
     Active Substance: GABAPENTIN
     Route: 065
  77. PERPHENAZINE. [Suspect]
     Active Substance: PERPHENAZINE
     Indication: PSYCHOTIC DISORDER
     Route: 065
  78. CITALOPRAM HYDROBROMIDE. [Suspect]
     Active Substance: CITALOPRAM HYDROBROMIDE
     Indication: SCHIZOPHRENIA
     Route: 065
  79. QUETIAPINE FUMARATE. [Suspect]
     Active Substance: QUETIAPINE FUMARATE
     Indication: SCHIZOPHRENIA
     Route: 048
  80. FLUOXETINE [Concomitant]
     Active Substance: FLUOXETINE HYDROCHLORIDE
  81. RISPERDAL [Suspect]
     Active Substance: RISPERIDONE
     Indication: SCHIZOPHRENIA
     Route: 065
  82. RISPERDAL [Suspect]
     Active Substance: RISPERIDONE
     Route: 065
  83. AMISULPRIDE [Suspect]
     Active Substance: AMISULPRIDE
     Indication: SCHIZOPHRENIA
     Route: 065
  84. CLOMIPRAMINE [Suspect]
     Active Substance: CLOMIPRAMINE
     Indication: SCHIZOPHRENIA
     Route: 065
  85. CLOZAPINE. [Suspect]
     Active Substance: CLOZAPINE
     Route: 048
  86. OLANZAPINE. [Suspect]
     Active Substance: OLANZAPINE
     Route: 065
  87. PERPHENAZINE. [Suspect]
     Active Substance: PERPHENAZINE
     Route: 065
  88. ZIPRASIDONE HYDROCHLORIDE. [Suspect]
     Active Substance: ZIPRASIDONE HYDROCHLORIDE
     Indication: PSYCHOTIC DISORDER
     Route: 065

REACTIONS (22)
  - Suicide attempt [Unknown]
  - Irritability [Unknown]
  - Akathisia [Unknown]
  - Product use in unapproved indication [Unknown]
  - Obsessive-compulsive disorder [Unknown]
  - Obesity [Unknown]
  - Dyslipidaemia [Unknown]
  - Toxicity to various agents [Unknown]
  - Increased appetite [Unknown]
  - Schizoaffective disorder [Unknown]
  - Disinhibition [Unknown]
  - Leukopenia [Unknown]
  - Drug ineffective [Unknown]
  - Therapeutic product effect variable [Unknown]
  - Leukaemia [Unknown]
  - Antipsychotic drug level below therapeutic [Unknown]
  - Euphoric mood [Unknown]
  - Therapeutic product effect incomplete [Unknown]
  - Hypertension [Unknown]
  - Prescribed overdose [Unknown]
  - Weight increased [Unknown]
  - Off label use [Unknown]
